FAERS Safety Report 5406553-9 (Version None)
Quarter: 2007Q3

REPORT INFORMATION
  Report Type: 
  Country: None (occurrence: None)
  Receive Date: 20070806
  Receipt Date: 20070725
  Transmission Date: 20080115
  Serious: Yes (Hospitalization, Other)
  Sender: FDA-Public Use
  Company Number: US-PFIZER INC-2007062906

PATIENT
  Sex: Female
  Weight: 72.6 kg

DRUGS (3)
  1. CHANTIX [Suspect]
     Indication: SMOKING CESSATION THERAPY
     Dates: start: 20070628, end: 20070722
  2. SYNTHROID [Concomitant]
  3. MONTELUKAST SODIUM [Concomitant]

REACTIONS (7)
  - CARBON DIOXIDE INCREASED [None]
  - DELUSION [None]
  - DEMENTIA ALZHEIMER'S TYPE [None]
  - HALLUCINATION [None]
  - HOMICIDAL IDEATION [None]
  - HYPERSOMNIA [None]
  - OXYGEN SATURATION DECREASED [None]
